FAERS Safety Report 13361725 (Version 1)
Quarter: 2017Q1

REPORT INFORMATION
  Report Type: Spontaneous
  Country: US (occurrence: US)
  Receive Date: 20170323
  Receipt Date: 20170323
  Transmission Date: 20170429
  Serious: Yes (Hospitalization)
  Sender: FDA-Public Use
  Company Number: US-009507513-1703USA008414

PATIENT
  Age: 51 Year
  Sex: Male
  Weight: 109.57 kg

DRUGS (1)
  1. JANUMET [Suspect]
     Active Substance: METFORMIN HYDROCHLORIDE\SITAGLIPTIN PHOSPHATE
     Indication: TYPE 2 DIABETES MELLITUS
     Dosage: UNK
     Route: 048

REACTIONS (2)
  - Pancreatitis necrotising [Not Recovered/Not Resolved]
  - Pancreatic abscess [Not Recovered/Not Resolved]

NARRATIVE: CASE EVENT DATE: 20150718
